FAERS Safety Report 9917828 (Version 1)
Quarter: 2014Q1

REPORT INFORMATION
  Report Type: Report from Study
  Country: US (occurrence: US)
  Receive Date: 20140221
  Receipt Date: 20140221
  Transmission Date: 20141002
  Serious: Yes (Other)
  Sender: FDA-Public Use
  Company Number: US-ABBVIE-14P-163-1201682-00

PATIENT
  Sex: Female

DRUGS (7)
  1. HUMIRA [Suspect]
     Indication: PSORIASIS
     Dates: start: 201310
  2. HUMIRA [Suspect]
     Dates: start: 201312, end: 201312
  3. LIPITOR [Concomitant]
     Indication: BLOOD CHOLESTEROL INCREASED
  4. LISINOPRIL [Concomitant]
     Indication: HYPERTENSION
  5. RANITIDINE [Concomitant]
     Indication: GASTROOESOPHAGEAL REFLUX DISEASE
  6. TACLONEX [Concomitant]
     Indication: PSORIASIS
  7. TACLONEX [Concomitant]
     Indication: PSORIASIS

REACTIONS (3)
  - Type 2 diabetes mellitus [Not Recovered/Not Resolved]
  - Breast mass [Recovered/Resolved]
  - Breast cancer [Not Recovered/Not Resolved]
